FAERS Safety Report 20154612 (Version 1)
Quarter: 2021Q4

REPORT INFORMATION
  Report Type: Other
  Country: FR (occurrence: None)
  Receive Date: 20211207
  Receipt Date: 20211207
  Transmission Date: 20220303
  Serious: Yes (Other)
  Sender: FDA-Public Use
  Company Number: FR-ROCHE-2973502

PATIENT

DRUGS (24)
  1. VEMURAFENIB [Suspect]
     Active Substance: VEMURAFENIB
     Indication: Malignant melanoma
     Route: 065
  2. VEMURAFENIB [Suspect]
     Active Substance: VEMURAFENIB
     Indication: Lung neoplasm malignant
  3. VEMURAFENIB [Suspect]
     Active Substance: VEMURAFENIB
     Indication: Histiocytic sarcoma
  4. VEMURAFENIB [Suspect]
     Active Substance: VEMURAFENIB
     Indication: Histiocytosis
  5. COBIMETINIB [Suspect]
     Active Substance: COBIMETINIB
     Indication: Malignant melanoma
     Route: 065
  6. COBIMETINIB [Suspect]
     Active Substance: COBIMETINIB
     Indication: Lung neoplasm malignant
  7. COBIMETINIB [Suspect]
     Active Substance: COBIMETINIB
     Indication: Histiocytic sarcoma
  8. COBIMETINIB [Suspect]
     Active Substance: COBIMETINIB
     Indication: Histiocytosis
  9. DABRAFENIB [Suspect]
     Active Substance: DABRAFENIB
     Indication: Malignant melanoma
     Route: 065
  10. DABRAFENIB [Suspect]
     Active Substance: DABRAFENIB
     Indication: Lung neoplasm malignant
  11. DABRAFENIB [Suspect]
     Active Substance: DABRAFENIB
     Indication: Histiocytic sarcoma
  12. DABRAFENIB [Suspect]
     Active Substance: DABRAFENIB
     Indication: Histiocytosis
  13. ENCORAFENIB [Suspect]
     Active Substance: ENCORAFENIB
     Indication: Malignant melanoma
     Route: 065
  14. ENCORAFENIB [Suspect]
     Active Substance: ENCORAFENIB
     Indication: Lung neoplasm malignant
  15. ENCORAFENIB [Suspect]
     Active Substance: ENCORAFENIB
     Indication: Histiocytic sarcoma
  16. ENCORAFENIB [Suspect]
     Active Substance: ENCORAFENIB
     Indication: Histiocytosis
  17. TRAMETINIB [Suspect]
     Active Substance: TRAMETINIB
     Indication: Malignant melanoma
     Route: 065
  18. TRAMETINIB [Suspect]
     Active Substance: TRAMETINIB
     Indication: Lung neoplasm malignant
  19. TRAMETINIB [Suspect]
     Active Substance: TRAMETINIB
     Indication: Histiocytic sarcoma
  20. TRAMETINIB [Suspect]
     Active Substance: TRAMETINIB
     Indication: Histiocytosis
  21. BINIMETINIB [Suspect]
     Active Substance: BINIMETINIB
     Indication: Malignant melanoma
     Route: 065
  22. BINIMETINIB [Suspect]
     Active Substance: BINIMETINIB
     Indication: Lung neoplasm malignant
  23. BINIMETINIB [Suspect]
     Active Substance: BINIMETINIB
     Indication: Histiocytic sarcoma
  24. BINIMETINIB [Suspect]
     Active Substance: BINIMETINIB
     Indication: Histiocytosis

REACTIONS (1)
  - Sarcoidosis [Unknown]
